FAERS Safety Report 13065703 (Version 2)
Quarter: 2018Q4

REPORT INFORMATION
  Report Type: Report from Study
  Country: None (occurrence: RO)
  Receive Date: 20161227
  Receipt Date: 20181119
  Transmission Date: 20190204
  Serious: Yes (Hospitalization)
  Sender: FDA-Public Use
  Company Number: RO-ABBVIE-16K-135-1816219-00

PATIENT
  Age: 56 Year
  Sex: Female
  Weight: 73 kg

DRUGS (4)
  1. VESSEL DUE [Concomitant]
     Active Substance: SULODEXIDE
     Indication: PRODUCT USED FOR UNKNOWN INDICATION
     Route: 048
     Dates: start: 20161212
  2. METHOTREXATE. [Concomitant]
     Active Substance: METHOTREXATE
     Indication: RHEUMATOID ARTHRITIS
     Route: 058
     Dates: start: 20161001
  3. VIMOVO [Concomitant]
     Active Substance: ESOMEPRAZOLE MAGNESIUM\NAPROXEN
     Indication: RHEUMATOID ARTHRITIS
     Route: 048
  4. HUMIRA [Suspect]
     Active Substance: ADALIMUMAB
     Indication: RHEUMATOID ARTHRITIS
     Route: 058
     Dates: start: 20160215

REACTIONS (8)
  - Accident at home [Unknown]
  - Thrombophlebitis superficial [Recovered/Resolved]
  - Synovial cyst [Recovering/Resolving]
  - Oedema peripheral [Recovered/Resolved]
  - Peripheral swelling [Recovered/Resolved]
  - Arthralgia [Recovered/Resolved]
  - Pain in extremity [Recovered/Resolved]
  - Hypertension [Recovered/Resolved]

NARRATIVE: CASE EVENT DATE: 2016
